FAERS Safety Report 4366694-4 (Version None)
Quarter: 2004Q2

REPORT INFORMATION
  Report Type: 
  Country: None (occurrence: None)
  Receive Date: 20040527
  Receipt Date: 20040517
  Transmission Date: 20050107
  Serious: Yes (Life-Threatening, Hospitalization, Disabling)
  Sender: FDA-Public Use
  Company Number: HK-BRISTOL-MYERS SQUIBB COMPANY-12589016

PATIENT
  Age: 64 Year
  Sex: Female

DRUGS (7)
  1. MAXIPIME [Suspect]
     Indication: PERITONITIS
     Dosage: REDUCED TO 250 MG - 4 TIMES DAILY,
     Route: 033
     Dates: start: 20040314, end: 20040317
  2. ELANTAN [Concomitant]
  3. FOLIC ACID [Concomitant]
  4. PYRIDOXINE [Concomitant]
  5. BETALOC [Concomitant]
  6. SLOW-K [Concomitant]
  7. FERROUS SULFATE TAB [Concomitant]

REACTIONS (3)
  - CONFUSIONAL STATE [None]
  - DEPRESSED LEVEL OF CONSCIOUSNESS [None]
  - DISORIENTATION [None]
